FAERS Safety Report 14037681 (Version 1)
Quarter: 2017Q4

REPORT INFORMATION
  Report Type: Spontaneous
  Country: GR (occurrence: GR)
  Receive Date: 20171004
  Receipt Date: 20171004
  Transmission Date: 20180321
  Serious: Yes (Death)
  Sender: FDA-Public Use
  Company Number: GR-CONCORDIA PHARMACEUTICALS INC.-E2B_00008410

PATIENT
  Age: 70 Year
  Sex: Male

DRUGS (2)
  1. VIMPAT [Concomitant]
     Active Substance: LACOSAMIDE
     Indication: EPILEPSY
     Dosage: UNKNOWN
  2. ZONEGRAN [Suspect]
     Active Substance: ZONISAMIDE
     Indication: EPILEPSY
     Dosage: 300 MG
     Route: 048

REACTIONS (1)
  - Respiratory tract infection [Fatal]
